FAERS Safety Report 5892405-7 (Version None)
Quarter: 2008Q3

REPORT INFORMATION
  Report Type: 
  Country: None (occurrence: None)
  Receive Date: 20080919
  Receipt Date: 20080919
  Transmission Date: 20090109
  Serious: Yes (Other)
  Sender: FDA-Public Use
  Company Number: None

PATIENT
  Age: 73 Year
  Sex: Female
  Weight: 65.318 kg

DRUGS (1)
  1. LEVAQUIN [Suspect]
     Indication: EAR INFECTION
     Dosage: 1 TAB DAILY PO
     Route: 048
     Dates: start: 20080828, end: 20080831

REACTIONS (2)
  - LIMB DISCOMFORT [None]
  - TENDON RUPTURE [None]
